FAERS Safety Report 25944241 (Version 2)
Quarter: 2025Q4

REPORT INFORMATION
  Report Type: Report from Study
  Country: EU (occurrence: EU)
  Receive Date: 20251021
  Receipt Date: 20251105
  Transmission Date: 20260118
  Serious: Yes (Hospitalization, Other)
  Sender: MYLAN
  Company Number: EU-MYLANLABS-2025M1088488

PATIENT
  Age: 37 Year
  Sex: Male

DRUGS (52)
  1. CLOZAPINE [Suspect]
     Active Substance: CLOZAPINE
     Indication: Schizoaffective disorder
     Dosage: 450 MILLIGRAM (COUNTED AS DAILY DOSE 450 MILLIGRAMS)
     Route: 065
  2. CLOZAPINE [Suspect]
     Active Substance: CLOZAPINE
     Indication: Personality disorder
     Dosage: 450 MILLIGRAM (COUNTED AS DAILY DOSE 450 MILLIGRAMS)
  3. CLOZAPINE [Suspect]
     Active Substance: CLOZAPINE
     Dosage: 450 MILLIGRAM (COUNTED AS DAILY DOSE 450 MILLIGRAMS)
  4. CLOZAPINE [Suspect]
     Active Substance: CLOZAPINE
     Dosage: 450 MILLIGRAM (COUNTED AS DAILY DOSE 450 MILLIGRAMS)
     Route: 065
  5. CLOZAPINE [Suspect]
     Active Substance: CLOZAPINE
     Dosage: 400 MILLIGRAM
  6. CLOZAPINE [Suspect]
     Active Substance: CLOZAPINE
     Dosage: 400 MILLIGRAM
  7. CLOZAPINE [Suspect]
     Active Substance: CLOZAPINE
     Dosage: 400 MILLIGRAM
     Route: 065
  8. CLOZAPINE [Suspect]
     Active Substance: CLOZAPINE
     Dosage: 400 MILLIGRAM
     Route: 065
  9. CLOZAPINE [Suspect]
     Active Substance: CLOZAPINE
     Dosage: 12.5 MILLIGRAM
     Route: 065
  10. CLOZAPINE [Suspect]
     Active Substance: CLOZAPINE
     Dosage: 12.5 MILLIGRAM
  11. CLOZAPINE [Suspect]
     Active Substance: CLOZAPINE
     Dosage: 12.5 MILLIGRAM
  12. CLOZAPINE [Suspect]
     Active Substance: CLOZAPINE
     Dosage: 12.5 MILLIGRAM
     Route: 065
  13. FLUOXETINE HYDROCHLORIDE [Concomitant]
     Active Substance: FLUOXETINE HYDROCHLORIDE
     Dosage: UNK, QD
  14. FLUOXETINE HYDROCHLORIDE [Concomitant]
     Active Substance: FLUOXETINE HYDROCHLORIDE
     Dosage: UNK, QD
     Route: 065
  15. FLUOXETINE HYDROCHLORIDE [Concomitant]
     Active Substance: FLUOXETINE HYDROCHLORIDE
     Dosage: UNK, QD
     Route: 065
  16. FLUOXETINE HYDROCHLORIDE [Concomitant]
     Active Substance: FLUOXETINE HYDROCHLORIDE
     Dosage: UNK, QD
  17. METFORMIN HYDROCHLORIDE [Concomitant]
     Active Substance: METFORMIN HYDROCHLORIDE
     Dosage: UNK, BID
  18. METFORMIN HYDROCHLORIDE [Concomitant]
     Active Substance: METFORMIN HYDROCHLORIDE
     Dosage: UNK, BID
     Route: 065
  19. METFORMIN HYDROCHLORIDE [Concomitant]
     Active Substance: METFORMIN HYDROCHLORIDE
     Dosage: UNK, BID
     Route: 065
  20. METFORMIN HYDROCHLORIDE [Concomitant]
     Active Substance: METFORMIN HYDROCHLORIDE
     Dosage: UNK, BID
  21. SERETIDE [Concomitant]
     Active Substance: FLUTICASONE PROPIONATE\SALMETEROL XINAFOATE
     Dosage: UNK, BID
  22. SERETIDE [Concomitant]
     Active Substance: FLUTICASONE PROPIONATE\SALMETEROL XINAFOATE
     Dosage: UNK, BID
     Route: 065
  23. SERETIDE [Concomitant]
     Active Substance: FLUTICASONE PROPIONATE\SALMETEROL XINAFOATE
     Dosage: UNK, BID
     Route: 065
  24. SERETIDE [Concomitant]
     Active Substance: FLUTICASONE PROPIONATE\SALMETEROL XINAFOATE
     Dosage: UNK, BID
  25. MOVICOL [Concomitant]
     Active Substance: POLYETHYLENE GLYCOL 3350\POTASSIUM CHLORIDE\SODIUM BICARBONATE\SODIUM CHLORIDE
     Dosage: UNK, PRN (AS NEEDED)
  26. MOVICOL [Concomitant]
     Active Substance: POLYETHYLENE GLYCOL 3350\POTASSIUM CHLORIDE\SODIUM BICARBONATE\SODIUM CHLORIDE
     Dosage: UNK, PRN (AS NEEDED)
     Route: 065
  27. MOVICOL [Concomitant]
     Active Substance: POLYETHYLENE GLYCOL 3350\POTASSIUM CHLORIDE\SODIUM BICARBONATE\SODIUM CHLORIDE
     Dosage: UNK, PRN (AS NEEDED)
     Route: 065
  28. MOVICOL [Concomitant]
     Active Substance: POLYETHYLENE GLYCOL 3350\POTASSIUM CHLORIDE\SODIUM BICARBONATE\SODIUM CHLORIDE
     Dosage: UNK, PRN (AS NEEDED)
  29. VALPROIC ACID [Concomitant]
     Active Substance: VALPROIC ACID
     Dosage: 1000 MILLIGRAM, BID
     Route: 065
     Dates: start: 2006
  30. VALPROIC ACID [Concomitant]
     Active Substance: VALPROIC ACID
     Dosage: 1000 MILLIGRAM, BID
     Dates: start: 2006
  31. VALPROIC ACID [Concomitant]
     Active Substance: VALPROIC ACID
     Dosage: 1000 MILLIGRAM, BID
     Dates: start: 2006
  32. VALPROIC ACID [Concomitant]
     Active Substance: VALPROIC ACID
     Dosage: 1000 MILLIGRAM, BID
     Route: 065
     Dates: start: 2006
  33. VALPROIC ACID [Concomitant]
     Active Substance: VALPROIC ACID
     Dosage: 500 MILLIGRAM, BID (500 MILLIGRAMS 2 TABLETS TWICE DAILY)
     Route: 065
  34. VALPROIC ACID [Concomitant]
     Active Substance: VALPROIC ACID
     Dosage: 500 MILLIGRAM, BID (500 MILLIGRAMS 2 TABLETS TWICE DAILY)
  35. VALPROIC ACID [Concomitant]
     Active Substance: VALPROIC ACID
     Dosage: 500 MILLIGRAM, BID (500 MILLIGRAMS 2 TABLETS TWICE DAILY)
  36. VALPROIC ACID [Concomitant]
     Active Substance: VALPROIC ACID
     Dosage: 500 MILLIGRAM, BID (500 MILLIGRAMS 2 TABLETS TWICE DAILY)
     Route: 065
  37. RISPERIDONE [Concomitant]
     Active Substance: RISPERIDONE
     Dosage: 6 MILLIGRAM, QD (6 MILLIGRAMS PER DAY)
  38. RISPERIDONE [Concomitant]
     Active Substance: RISPERIDONE
     Dosage: 6 MILLIGRAM, QD (6 MILLIGRAMS PER DAY)
     Route: 065
  39. RISPERIDONE [Concomitant]
     Active Substance: RISPERIDONE
     Dosage: 6 MILLIGRAM, QD (6 MILLIGRAMS PER DAY)
     Route: 065
  40. RISPERIDONE [Concomitant]
     Active Substance: RISPERIDONE
     Dosage: 6 MILLIGRAM, QD (6 MILLIGRAMS PER DAY)
  41. Absenor [Concomitant]
     Dosage: 2500 MILLIGRAM, QD (500PLUS1000PLUS1000 MILLIGRAMS/DAY.)
  42. Absenor [Concomitant]
     Dosage: 2500 MILLIGRAM, QD (500PLUS1000PLUS1000 MILLIGRAMS/DAY.)
     Route: 065
  43. Absenor [Concomitant]
     Dosage: 2500 MILLIGRAM, QD (500PLUS1000PLUS1000 MILLIGRAMS/DAY.)
     Route: 065
  44. Absenor [Concomitant]
     Dosage: 2500 MILLIGRAM, QD (500PLUS1000PLUS1000 MILLIGRAMS/DAY.)
  45. QUETIAPINE [Concomitant]
     Active Substance: QUETIAPINE
     Dosage: 1800 MILLIGRAM, QD (QUETIAPINE, 300PLUS600PLUS900 MILLIGRAM PER DAY)
     Dates: start: 2008
  46. QUETIAPINE [Concomitant]
     Active Substance: QUETIAPINE
     Dosage: 1800 MILLIGRAM, QD (QUETIAPINE, 300PLUS600PLUS900 MILLIGRAM PER DAY)
     Route: 065
     Dates: start: 2008
  47. QUETIAPINE [Concomitant]
     Active Substance: QUETIAPINE
     Dosage: 1800 MILLIGRAM, QD (QUETIAPINE, 300PLUS600PLUS900 MILLIGRAM PER DAY)
     Route: 065
     Dates: start: 2008
  48. QUETIAPINE [Concomitant]
     Active Substance: QUETIAPINE
     Dosage: 1800 MILLIGRAM, QD (QUETIAPINE, 300PLUS600PLUS900 MILLIGRAM PER DAY)
     Dates: start: 2008
  49. ZYPADHERA [Concomitant]
     Active Substance: OLANZAPINE PAMOATE
     Dosage: UNK
  50. ZYPADHERA [Concomitant]
     Active Substance: OLANZAPINE PAMOATE
     Dosage: UNK
     Route: 065
  51. ZYPADHERA [Concomitant]
     Active Substance: OLANZAPINE PAMOATE
     Dosage: UNK
     Route: 065
  52. ZYPADHERA [Concomitant]
     Active Substance: OLANZAPINE PAMOATE
     Dosage: UNK

REACTIONS (3)
  - Neutropenia [Recovered/Resolved]
  - Respiratory tract infection [Recovered/Resolved]
  - Off label use [Recovered/Resolved]
